FAERS Safety Report 10468196 (Version 1)
Quarter: 2014Q3

REPORT INFORMATION
  Report Type: Spontaneous
  Country: US (occurrence: US)
  Receive Date: 20140922
  Receipt Date: 20140922
  Transmission Date: 20150326
  Serious: No
  Sender: FDA-Public Use
  Company Number: US-PFIZER INC-2014261319

PATIENT
  Age: 62 Year
  Sex: Female
  Weight: 110 kg

DRUGS (7)
  1. METOCLOPRAMIDE. [Concomitant]
     Active Substance: METOCLOPRAMIDE
     Indication: POSTOPERATIVE CARE
     Dosage: 10 MG, UNK
  2. GABAPENTIN. [Concomitant]
     Active Substance: GABAPENTIN
     Dosage: 600 MG, 3X/DAY
  3. ONDANSETRON [Concomitant]
     Active Substance: ONDANSETRON
     Indication: POSTOPERATIVE CARE
     Dosage: 10 MG, UNK
  4. OMEPRAZOLE. [Concomitant]
     Active Substance: OMEPRAZOLE
     Dosage: 40 MG, UNK
  5. TRAZODONE [Concomitant]
     Active Substance: TRAZODONE HYDROCHLORIDE
     Dosage: 50 MG, DAILY
  6. POTASSIUM CHLORIDE. [Concomitant]
     Active Substance: POTASSIUM CHLORIDE
     Dosage: UNK,3X/DAY
  7. CHANTIX [Suspect]
     Active Substance: VARENICLINE TARTRATE
     Indication: SMOKING CESSATION THERAPY
     Dosage: UNK
     Dates: start: 201203, end: 20120513

REACTIONS (1)
  - Weight increased [Unknown]
